FAERS Safety Report 8987086 (Version 1)
Quarter: 2012Q4

REPORT INFORMATION
  Report Type: 
  Country: US (occurrence: US)
  Receive Date: 20121226
  Receipt Date: 20121226
  Transmission Date: 20130627
  Serious: Yes (Other)
  Sender: FDA-Public Use
  Company Number: US-PFIZER INC-2012328038

PATIENT
  Age: 20 Year
  Sex: Female
  Weight: 73.02 kg

DRUGS (2)
  1. PRISTIQ [Suspect]
     Indication: POST-TRAUMATIC STRESS DISORDER
     Dosage: 50mg daily
     Dates: start: 2011
  2. ALBUTEROL [Concomitant]
     Indication: ASTHMA
     Dosage: UNK, as needed
     Dates: start: 2012

REACTIONS (5)
  - Off label use [Unknown]
  - Renal disorder [Unknown]
  - Renal impairment [Not Recovered/Not Resolved]
  - Back pain [Unknown]
  - Pain [Not Recovered/Not Resolved]
